FAERS Safety Report 9383634 (Version 2)
Quarter: 2013Q3

REPORT INFORMATION
  Report Type: Spontaneous
  Country: US (occurrence: US)
  Receive Date: 20130704
  Receipt Date: 20130809
  Transmission Date: 20140515
  Serious: No
  Sender: FDA-Public Use
  Company Number: US-PFIZER INC-2013196690

PATIENT
  Age: 49 Year
  Sex: Female

DRUGS (3)
  1. LYRICA [Suspect]
     Dosage: UNK
  2. CODEINE [Suspect]
     Dosage: UNK
  3. ASPIRIN [Suspect]
     Dosage: UNK

REACTIONS (1)
  - Drug hypersensitivity [Unknown]
